FAERS Safety Report 6370783-2 (Version None)
Quarter: 2009Q3

REPORT INFORMATION
  Report Type: 
  Country: None (occurrence: None)
  Receive Date: 20090923
  Receipt Date: 20070605
  Transmission Date: 20100115
  Serious: No
  Sender: FDA-Public Use
  Company Number: US-ASTRAZENECA-2006UW24573

PATIENT
  Age: 10696 Day
  Sex: Female
  Weight: 102.5 kg

DRUGS (12)
  1. SEROQUEL [Suspect]
     Indication: ANXIETY
     Route: 048
     Dates: start: 20020923
  2. SEROQUEL [Suspect]
     Indication: SLEEP DISORDER
     Route: 048
     Dates: start: 20020923
  3. SEROQUEL [Suspect]
     Route: 048
  4. SEROQUEL [Suspect]
     Route: 048
  5. ZYPREXA [Suspect]
     Dates: start: 20010529
  6. RISPERDAL [Concomitant]
     Dates: start: 19990701
  7. PROZAC [Concomitant]
  8. THORAZINE [Concomitant]
     Dates: start: 20060101
  9. EFFEXOR XR [Concomitant]
     Dosage: 75-225 MG EVERY MORNING
  10. XANAX XR [Concomitant]
     Dosage: 2-3 MG DAILY
  11. ABILIFY [Concomitant]
  12. NEURONTIN [Concomitant]

REACTIONS (4)
  - DIABETES MELLITUS [None]
  - GESTATIONAL DIABETES [None]
  - TYPE 1 DIABETES MELLITUS [None]
  - TYPE 2 DIABETES MELLITUS [None]
